FAERS Safety Report 5637631-7 (Version None)
Quarter: 2008Q1

REPORT INFORMATION
  Report Type: 
  Country: None (occurrence: None)
  Receive Date: 20080219
  Receipt Date: 20080208
  Transmission Date: 20080703
  Serious: Yes (Hospitalization, Other)
  Sender: FDA-Public Use
  Company Number: 230379M07USA

PATIENT
  Age: 45 Year
  Sex: Female
  Weight: 61.6892 kg

DRUGS (7)
  1. REBIF [Suspect]
     Indication: MULTIPLE SCLEROSIS
     Dosage: 8.8 MCG, 3 IN 1 WEEKS, SUBCUTANEOUS; 22 MCG, 3 IN 1 WEEKS, SUBCUTANEOUS
     Route: 058
     Dates: start: 20071109, end: 20071101
  2. REBIF [Suspect]
     Indication: MULTIPLE SCLEROSIS
     Dosage: 8.8 MCG, 3 IN 1 WEEKS, SUBCUTANEOUS; 22 MCG, 3 IN 1 WEEKS, SUBCUTANEOUS
     Route: 058
     Dates: start: 20071101, end: 20071127
  3. CYTOSAR-U [Suspect]
     Indication: MYELODYSPLASTIC SYNDROME
     Dosage: ONCE
     Dates: start: 20080128
  4. IDAMYCIN [Suspect]
     Indication: MYELODYSPLASTIC SYNDROME
     Dosage: ONCE
     Dates: start: 20080128
  5. PROVIGIL [Concomitant]
  6. CLONAZEPAM [Concomitant]
  7. PROZAC [Concomitant]

REACTIONS (6)
  - ANAEMIA [None]
  - CATHETER RELATED INFECTION [None]
  - CONTUSION [None]
  - FEBRILE NEUTROPENIA [None]
  - HAEMORRHAGE [None]
  - MYELODYSPLASTIC SYNDROME [None]
